FAERS Safety Report 6604436-X (Version None)
Quarter: 2010Q1

REPORT INFORMATION
  Report Type: 
  Country: None (occurrence: None)
  Receive Date: 20100226
  Receipt Date: 20091008
  Transmission Date: 20100710
  Serious: No
  Sender: FDA-Public Use
  Company Number: A0810935A

PATIENT
  Age: 29 Year
  Sex: Female

DRUGS (2)
  1. LAMICTAL CD [Suspect]
     Indication: BIPOLAR DISORDER
     Route: 048
     Dates: start: 20090801, end: 20090901
  2. NO CONCURRENT MEDICATION [Concomitant]

REACTIONS (2)
  - ALOPECIA [None]
  - DERMATITIS [None]
